FAERS Safety Report 5043977-6 (Version None)
Quarter: 2006Q3

REPORT INFORMATION
  Report Type: 
  Country: None (occurrence: None)
  Receive Date: 20060706
  Receipt Date: 20060626
  Transmission Date: 20061208
  Serious: Yes (Other)
  Sender: FDA-Public Use
  Company Number: 2006UW13516

PATIENT
  Age: 28 Year
  Sex: Female

DRUGS (5)
  1. SEROQUEL [Suspect]
     Indication: SLEEP DISORDER
     Route: 048
     Dates: start: 20031101, end: 20040101
  2. ABILIFY [Suspect]
     Indication: SLEEP DISORDER
     Dates: start: 20031101, end: 20040701
  3. ZYPREXA [Concomitant]
     Dates: start: 20030901
  4. ZYPREXA [Concomitant]
     Dates: start: 20021001
  5. RISPERIDONE [Concomitant]
     Dates: start: 20030701

REACTIONS (10)
  - DEPRESSION [None]
  - HALLUCINATION, AUDITORY [None]
  - HYPERPHAGIA [None]
  - MENTAL IMPAIRMENT [None]
  - NASAL CONGESTION [None]
  - NECK PAIN [None]
  - RHINORRHOEA [None]
  - SNEEZING [None]
  - SUICIDAL IDEATION [None]
  - WEIGHT INCREASED [None]
